FAERS Safety Report 5659630-1 (Version None)
Quarter: 2008Q1

REPORT INFORMATION
  Report Type: 
  Country: None (occurrence: None)
  Receive Date: 20080310
  Receipt Date: 20080310
  Transmission Date: 20080703
  Serious: No
  Sender: FDA-Public Use
  Company Number: None

PATIENT
  Age: 52 Year
  Sex: Female
  Weight: 63.9572 kg

DRUGS (1)
  1. ZICAM ZINC 2X MATRIXX [Suspect]
     Indication: RHINORRHOEA
     Dosage: 1 TIME EACH NOSTRIL EVERY 4 TO 6 HOURS NASAL
     Route: 045
     Dates: start: 20080128, end: 20080128

REACTIONS (4)
  - BURNING SENSATION [None]
  - DYSGEUSIA [None]
  - HYPERSENSITIVITY [None]
  - PAROSMIA [None]
